FAERS Safety Report 22633837 (Version 1)
Quarter: 2023Q2

REPORT INFORMATION
  Report Type: Spontaneous
  Country: US (occurrence: US)
  Receive Date: 20230623
  Receipt Date: 20230623
  Transmission Date: 20230722
  Serious: No
  Sender: FDA-Public Use
  Company Number: US-MLMSERVICE-20230522-4299377-1

PATIENT
  Age: 46 Year
  Sex: Female

DRUGS (1)
  1. STROMECTOL [Suspect]
     Active Substance: IVERMECTIN
     Indication: COVID-19
     Dosage: UNK
     Route: 048

REACTIONS (2)
  - Abdominal pain [Recovered/Resolved]
  - Product use in unapproved indication [Unknown]
